FAERS Safety Report 25922100 (Version 1)
Quarter: 2025Q4

REPORT INFORMATION
  Report Type: Spontaneous
  Country: JP (occurrence: JP)
  Receive Date: 20251015
  Receipt Date: 20251015
  Transmission Date: 20260117
  Serious: Yes (Other)
  Sender: SANDOZ
  Company Number: JP-SANDOZ INC.-SDZ2025JP074405

PATIENT
  Age: 48 Year
  Sex: Male
  Weight: 98 kg

DRUGS (23)
  1. EPINEPHRINE\LIDOCAINE HYDROCHLORIDE [Suspect]
     Active Substance: EPINEPHRINE\LIDOCAINE HYDROCHLORIDE
     Indication: Local anaesthesia
     Dosage: 20 ML
     Route: 065
  2. XYLOCAINE [Suspect]
     Active Substance: LIDOCAINE HYDROCHLORIDE
     Indication: Local anaesthesia
     Dosage: 2 ML
     Route: 065
  3. XYLOCAINE [Suspect]
     Active Substance: LIDOCAINE HYDROCHLORIDE
     Dosage: 4 ML
     Route: 065
  4. XYLOCAINE [Suspect]
     Active Substance: LIDOCAINE HYDROCHLORIDE
     Dosage: 4 ML
     Route: 065
  5. EPHEDRINE HYDROCHLORIDE [Concomitant]
     Active Substance: EPHEDRINE HYDROCHLORIDE
     Indication: Product used for unknown indication
     Dosage: 4 MG
     Route: 065
  6. EPHEDRINE HYDROCHLORIDE [Concomitant]
     Active Substance: EPHEDRINE HYDROCHLORIDE
     Dosage: 4 MG
     Route: 065
  7. FENTANYL [Concomitant]
     Active Substance: FENTANYL
     Indication: General anaesthesia
     Dosage: 100 UG
     Route: 065
  8. FENTANYL [Concomitant]
     Active Substance: FENTANYL
     Dosage: 100 UG
     Route: 065
  9. FENTANYL [Concomitant]
     Active Substance: FENTANYL
     Dosage: 100 UG
     Route: 065
  10. REMIFENTANIL [Concomitant]
     Active Substance: REMIFENTANIL
     Indication: Local anaesthesia
     Dosage: 0.075 UG/KG/MIN
     Route: 065
  11. REMIFENTANIL [Concomitant]
     Active Substance: REMIFENTANIL
     Indication: General anaesthesia
     Dosage: 0.20 UG/KG/MIN
     Route: 065
  12. REMIFENTANIL [Concomitant]
     Active Substance: REMIFENTANIL
     Dosage: 0.25 UG/KG/MIN
     Route: 065
  13. REMIMAZOLAM [Concomitant]
     Active Substance: REMIMAZOLAM
     Indication: General anaesthesia
     Dosage: 10 MG
     Route: 065
  14. REMIMAZOLAM [Concomitant]
     Active Substance: REMIMAZOLAM
     Dosage: 100MG/H
     Route: 065
  15. REMIMAZOLAM [Concomitant]
     Active Substance: REMIMAZOLAM
     Dosage: 50MG/H
     Route: 065
  16. REMIMAZOLAM [Concomitant]
     Active Substance: REMIMAZOLAM
     Dosage: 60MG/H
     Route: 065
  17. REMIMAZOLAM [Concomitant]
     Active Substance: REMIMAZOLAM
     Dosage: 80MG/H
     Route: 065
  18. ROCURONIUM BROMIDE [Concomitant]
     Active Substance: ROCURONIUM BROMIDE
     Dosage: 10 MG
     Route: 065
  19. ROCURONIUM BROMIDE [Concomitant]
     Active Substance: ROCURONIUM BROMIDE
     Dosage: 20 MG
     Route: 065
  20. ROCURONIUM BROMIDE [Concomitant]
     Active Substance: ROCURONIUM BROMIDE
     Dosage: 20 MG
     Route: 065
  21. ROCURONIUM BROMIDE [Concomitant]
     Active Substance: ROCURONIUM BROMIDE
     Dosage: 20 MG
     Route: 065
  22. ROCURONIUM BROMIDE [Concomitant]
     Active Substance: ROCURONIUM BROMIDE
     Dosage: 20 MG
     Route: 065
  23. ROCURONIUM BROMIDE [Concomitant]
     Active Substance: ROCURONIUM BROMIDE
     Indication: Neuromuscular blockade
     Dosage: 60 MG
     Route: 065

REACTIONS (1)
  - Local anaesthetic systemic toxicity [Unknown]
